FAERS Safety Report 5988273-5 (Version None)
Quarter: 2008Q4

REPORT INFORMATION
  Report Type: 
  Country: None (occurrence: None)
  Receive Date: 20081204
  Receipt Date: 20081124
  Transmission Date: 20090506
  Serious: Yes (Hospitalization)
  Sender: FDA-Public Use
  Company Number: 231371K08USA

PATIENT
  Age: 57 Year
  Sex: Male

DRUGS (6)
  1. REBIF [Suspect]
     Indication: MULTIPLE SCLEROSIS
     Dosage: 44 MCG, 3 IN 1 WEEKS, SUBCUTANEOUS
     Route: 058
     Dates: start: 20080116
  2. LIPITOR [Concomitant]
  3. BACLOFEN [Concomitant]
  4. ATIVAN [Concomitant]
  5. UNSPECIFIED BLOOD THINNER (ALL OTHER THERPEUTIC PRODUCTS) [Concomitant]
  6. UNSPECIFIED OVER THE COUNTER MEDICATION (LL OTHER THERAPEUTIC PRODUCTS [Concomitant]

REACTIONS (3)
  - COLLAPSE OF LUNG [None]
  - INCISION SITE PAIN [None]
  - PNEUMOTHORAX [None]
